FAERS Safety Report 19717508 (Version 3)
Quarter: 2021Q3

REPORT INFORMATION
  Report Type: Report from Study
  Country: CA (occurrence: CA)
  Receive Date: 20210819
  Receipt Date: 20210824
  Transmission Date: 20211014
  Serious: Yes (Other)
  Sender: FDA-Public Use
  Company Number: CA-JNJFOC-20210823310

PATIENT
  Age: 81 Year
  Sex: Female
  Weight: 93.98 kg

DRUGS (1)
  1. REMICADE [Suspect]
     Active Substance: INFLIXIMAB
     Indication: RHEUMATOID ARTHRITIS
     Dosage: PATIENTS REMICADE INFUSION WAS SCHEDULED FOR 01?SEP?2021.THIS APPOINTMENT WILL BE CANCELLED.
     Route: 042

REACTIONS (2)
  - Vulval cancer [Unknown]
  - Neoplasm malignant [Unknown]

NARRATIVE: CASE EVENT DATE: 20210812
